FAERS Safety Report 6120538-9 (Version None)
Quarter: 2009Q1

REPORT INFORMATION
  Report Type: 
  Country: None (occurrence: None)
  Receive Date: 20090312
  Receipt Date: 20090312
  Transmission Date: 20090719
  Serious: Yes (Hospitalization)
  Sender: FDA-Public Use
  Company Number: None

PATIENT
  Sex: Male
  Weight: 65.1 kg

DRUGS (6)
  1. METHOTREXATE [Suspect]
     Dosage: 30 MG
  2. PEG-L-ASPARAGINASE (K-H) [Suspect]
  3. VINCRISTINE SULFATE [Suspect]
     Dosage: 2 MG
  4. CYCLOPHOSPHAMIDE [Suspect]
     Dosage: 1770 MG
  5. CYTARABINE [Suspect]
     Dosage: 1080 MG
  6. MERCAPTOPURINE [Suspect]
     Dosage: 1000 MG

REACTIONS (6)
  - DEPRESSED LEVEL OF CONSCIOUSNESS [None]
  - FALL [None]
  - HEADACHE [None]
  - INTRACRANIAL HYPOTENSION [None]
  - LETHARGY [None]
  - MUSCULAR WEAKNESS [None]
